FAERS Safety Report 18582173 (Version 1)
Quarter: 2020Q4

REPORT INFORMATION
  Report Type: Spontaneous
  Country: US (occurrence: US)
  Receive Date: 20201204
  Receipt Date: 20201204
  Transmission Date: 20210114
  Serious: No
  Sender: FDA-Public Use
  Company Number: NVSC2020US321483

PATIENT
  Sex: Female
  Weight: 137 kg

DRUGS (3)
  1. LOSARTAN POTASSIUM. [Suspect]
     Active Substance: LOSARTAN POTASSIUM
     Indication: PRODUCT USED FOR UNKNOWN INDICATION
     Dosage: UNK
     Route: 065
  2. TREPROSTINIL DIOLAMIN [Suspect]
     Active Substance: TREPROSTINIL DIOLAMINE
     Indication: PRODUCT USED FOR UNKNOWN INDICATION
     Dosage: UNK
     Route: 048
  3. MACITENTAN [Suspect]
     Active Substance: MACITENTAN
     Indication: HYPOTENSION
     Dosage: 10 MG, QD
     Route: 048

REACTIONS (4)
  - Palpitations [Unknown]
  - Hypotension [Unknown]
  - Fatigue [Unknown]
  - Dizziness [Unknown]
